FAERS Safety Report 9010431 (Version 1)
Quarter: 2013Q1

REPORT INFORMATION
  Report Type: Spontaneous
  Country: BR (occurrence: BR)
  Receive Date: 20130109
  Receipt Date: 20130109
  Transmission Date: 20140127
  Serious: No
  Sender: FDA-Public Use
  Company Number: BR-ROCHE-1177368

PATIENT
  Sex: Female

DRUGS (1)
  1. ROACUTAN [Suspect]
     Indication: ACNE
     Route: 065
     Dates: start: 20120918, end: 20121005

REACTIONS (1)
  - Pregnancy [Unknown]
